FAERS Safety Report 15339534 (Version 1)
Quarter: 2018Q3

REPORT INFORMATION
  Report Type: Spontaneous
  Country: FR (occurrence: FR)
  Receive Date: 20180831
  Receipt Date: 20180831
  Transmission Date: 20181010
  Serious: Yes (Other)
  Sender: FDA-Public Use
  Company Number: FR-PFIZER INC-2018351777

PATIENT
  Age: 48 Year
  Sex: Female
  Weight: 76 kg

DRUGS (1)
  1. PACLITAXEL. [Suspect]
     Active Substance: PACLITAXEL
     Indication: BREAST CANCER
     Dosage: 80 MG/M2, UNK
     Route: 042
     Dates: start: 20170414, end: 201707

REACTIONS (4)
  - Neuropathy peripheral [Recovered/Resolved]
  - Myalgia [Recovered/Resolved]
  - Onycholysis [Recovered/Resolved]
  - Onychalgia [Recovered/Resolved]

NARRATIVE: CASE EVENT DATE: 2017
